FAERS Safety Report 20393335 (Version 1)
Quarter: 2022Q1

REPORT INFORMATION
  Report Type: Spontaneous
  Country: FR (occurrence: FR)
  Receive Date: 20220128
  Receipt Date: 20220128
  Transmission Date: 20220423
  Serious: Yes (Congenital Anomaly)
  Sender: FDA-Public Use
  Company Number: None

PATIENT
  Age: 0 Day
  Sex: Male

DRUGS (1)
  1. FLUOXETINE [Suspect]
     Active Substance: FLUOXETINE HYDROCHLORIDE
     Dosage: FLUOXETINE HYDROCHLORIDE, 20 MG
     Route: 064
     Dates: start: 201907, end: 202002

REACTIONS (1)
  - Ankyloglossia congenital [Not Recovered/Not Resolved]

NARRATIVE: CASE EVENT DATE: 20200519
